FAERS Safety Report 8452993-3 (Version None)
Quarter: 2012Q2

REPORT INFORMATION
  Report Type: 
  Country: None (occurrence: None)
  Receive Date: 20120620
  Receipt Date: 20120503
  Transmission Date: 20120825
  Serious: No
  Sender: FDA-Public Use
  Company Number: US-VERTEX PHARMACEUTICALS INC.-AE-2012-006442

PATIENT
  Sex: Female
  Weight: 78.996 kg

DRUGS (5)
  1. PEGASYS [Concomitant]
     Indication: HEPATITIS C
     Route: 058
     Dates: start: 20120411
  2. LORTAB [Concomitant]
  3. INCIVEK [Suspect]
     Indication: HEPATITIS C
     Route: 048
     Dates: start: 20120411
  4. RIBAVIRIN [Concomitant]
     Indication: HEPATITIS C
     Route: 048
     Dates: start: 20120411
  5. LORAZEPAM [Concomitant]
     Indication: ANXIETY

REACTIONS (2)
  - INFLUENZA LIKE ILLNESS [None]
  - MOOD SWINGS [None]
